FAERS Safety Report 8212659-1 (Version None)
Quarter: 2012Q1

REPORT INFORMATION
  Report Type: 
  Country: None (occurrence: None)
  Receive Date: 20120315
  Receipt Date: 20120307
  Transmission Date: 20120608
  Serious: Yes (Hospitalization)
  Sender: FDA-Public Use
  Company Number: US-BAYER-2011-111082

PATIENT
  Age: 40 Year
  Sex: Female
  Weight: 95.25 kg

DRUGS (4)
  1. YAZ [Suspect]
     Dosage: UNK
     Route: 048
     Dates: start: 20060116
  2. IBUPROFEN (ADVIL) [Concomitant]
  3. YASMIN [Suspect]
     Indication: OVARIAN CYST
     Dosage: UNK
     Route: 048
     Dates: start: 20060116
  4. DROSPIRENONE AND ETHINYL ESTRADIOL [Suspect]
     Dosage: UNK
     Route: 048
     Dates: start: 20060116

REACTIONS (6)
  - EMOTIONAL DISTRESS [None]
  - GENERAL PHYSICAL HEALTH DETERIORATION [None]
  - PAIN [None]
  - INJURY [None]
  - ANXIETY [None]
  - DEEP VEIN THROMBOSIS [None]
